FAERS Safety Report 7691335-8 (Version None)
Quarter: 2011Q3

REPORT INFORMATION
  Report Type: 
  Country: None (occurrence: None)
  Receive Date: 20110818
  Receipt Date: 20110803
  Transmission Date: 20111222
  Serious: Yes (Other)
  Sender: FDA-Public Use
  Company Number: PHHY2011VE71431

PATIENT
  Sex: Female

DRUGS (6)
  1. LYRICA [Concomitant]
     Indication: BONE PAIN
     Dosage: BID
  2. CALCORT [Concomitant]
     Indication: ARTHRITIS
     Dosage: (DAILY)
     Dates: start: 20110101
  3. INSULIN [Concomitant]
     Indication: DIABETES MELLITUS
     Dosage: 9 UNITS MORNING AND 6 IN THE AFTERNOON
     Dates: start: 20110101
  4. KETOPROFEN [Concomitant]
     Indication: DIABETIC NEUROPATHY
     Dosage: TID
     Dates: start: 20110101
  5. DIOVAN [Suspect]
     Indication: HYPERTENSION
     Dosage: (DAILY)
     Dates: start: 20050101
  6. ARAVA [Concomitant]
     Indication: ARTHRITIS
     Dosage: UNK UKN, UNK
     Dates: start: 20110101

REACTIONS (4)
  - SPINAL COMPRESSION FRACTURE [None]
  - PAIN [None]
  - SPINAL DISORDER [None]
  - WALKING DISABILITY [None]
